FAERS Safety Report 8912816 (Version 1)
Quarter: 2012Q4

REPORT INFORMATION
  Report Type: Report from Study
  Country: DE (occurrence: DE)
  Receive Date: 20121115
  Receipt Date: 20121115
  Transmission Date: 20130627
  Serious: Yes (Hospitalization)
  Sender: FDA-Public Use
  Company Number: DE-ABBOTT-12P-062-1005722-00

PATIENT
  Age: 43 Year
  Sex: Male
  Weight: 92 kg

DRUGS (4)
  1. HUMIRA [Suspect]
     Route: 058
     Dates: start: 20120117
  2. ETORICOXIB [Concomitant]
     Indication: PSORIATIC ARTHROPATHY
     Dosage: 90mg daily
     Route: 048
     Dates: start: 20120117
  3. NOVAMINSULFON [Concomitant]
     Indication: PSORIATIC ARTHROPATHY
     Dates: start: 201202
  4. PSORCUTAN [Concomitant]
     Indication: PSORIASIS
     Dosage: unk.

REACTIONS (1)
  - Renal colic [Recovered/Resolved]
